FAERS Safety Report 6462567-1 (Version None)
Quarter: 2009Q4

REPORT INFORMATION
  Report Type: 
  Country: None (occurrence: None)
  Receive Date: 20091124
  Receipt Date: 20091109
  Transmission Date: 20100525
  Serious: Yes (Other)
  Sender: FDA-Public Use
  Company Number: 1-20564599

PATIENT
  Age: 57 Year
  Sex: Male
  Weight: 95.2554 kg

DRUGS (4)
  1. WARFARIN SODIUM [Suspect]
     Indication: THROMBOSIS PROPHYLAXIS
     Dosage: 5 MG 6D/WK, 7.5MG, 1D/WK, ORAL
     Route: 048
     Dates: start: 20091015, end: 20091102
  2. LISINOPRIL [Concomitant]
  3. MULTI-VITAMIN [Concomitant]
  4. FISH OIL [Concomitant]

REACTIONS (10)
  - COUGH [None]
  - DRUG HYPERSENSITIVITY [None]
  - DYSPHONIA [None]
  - EYE SWELLING [None]
  - LIP SWELLING [None]
  - OROPHARYNGEAL PAIN [None]
  - PRODUCT SUBSTITUTION ISSUE [None]
  - RASH GENERALISED [None]
  - SWOLLEN TONGUE [None]
  - URTICARIA [None]
